FAERS Safety Report 8093612-8 (Version None)
Quarter: 2012Q1

REPORT INFORMATION
  Report Type: 
  Country: None (occurrence: None)
  Receive Date: 20120129
  Receipt Date: 20110921
  Transmission Date: 20120608
  Serious: No
  Sender: FDA-Public Use
  Company Number: US-ABBOTT-11P-163-0856938-00

PATIENT

DRUGS (3)
  1. HUMIRA [Suspect]
     Indication: CROHN'S DISEASE
     Dates: start: 20110825
  2. OMEPRAZOLE [Concomitant]
     Indication: BARRETT'S OESOPHAGUS
  3. AMLODIPINE [Concomitant]
     Indication: HYPERTENSION

REACTIONS (7)
  - DECREASED APPETITE [None]
  - INFLUENZA LIKE ILLNESS [None]
  - RETCHING [None]
  - DIARRHOEA [None]
  - SKIN PAPILLOMA [None]
  - PSORIASIS [None]
  - VOMITING [None]
